FAERS Safety Report 23849608 (Version 1)
Quarter: 2024Q2

REPORT INFORMATION
  Report Type: Spontaneous
  Country: US (occurrence: None)
  Receive Date: 20240512
  Receipt Date: 20240512
  Transmission Date: 20240716
  Serious: Yes (Hospitalization)
  Sender: FDA-Public Use
  Company Number: None

PATIENT
  Age: 88 Year
  Sex: Male
  Weight: 77 kg

DRUGS (1)
  1. TORSEMIDE [Suspect]
     Active Substance: TORSEMIDE
     Indication: Cardiac failure congestive
     Dosage: OTHER FREQUENCY : AM;?
     Route: 048
     Dates: end: 20190807

REACTIONS (3)
  - Rash [None]
  - Blister [None]
  - Sepsis [None]

NARRATIVE: CASE EVENT DATE: 20190807
